FAERS Safety Report 13818067 (Version 1)
Quarter: 2017Q3

REPORT INFORMATION
  Report Type: Spontaneous
  Country: US (occurrence: US)
  Receive Date: 20170731
  Receipt Date: 20170731
  Transmission Date: 20171127
  Serious: No
  Sender: FDA-Public Use
  Company Number: US-ROCHE-622060

PATIENT
  Age: 61 Year
  Sex: Female

DRUGS (9)
  1. VITAMIN [Concomitant]
     Active Substance: VITAMINS
     Route: 065
  2. VITAMIN D [Concomitant]
     Active Substance: CHOLECALCIFEROL
     Route: 065
  3. BONIVA [Suspect]
     Active Substance: IBANDRONATE SODIUM
     Route: 065
  4. COENZYME Q10 [Concomitant]
     Active Substance: UBIDECARENONE
     Route: 065
  5. COLACE [Concomitant]
     Active Substance: DOCUSATE SODIUM
     Route: 065
  6. MORPHINE [Concomitant]
     Active Substance: MORPHINE
     Dosage: ER TABLET
     Route: 065
  7. CHOLEST-OFF [Concomitant]
     Active Substance: DIETARY SUPPLEMENT
     Route: 065
  8. VIACTIV [Concomitant]
     Active Substance: CALCIUM\VITAMIN D\VITAMIN K5
     Route: 065
  9. BONIVA [Suspect]
     Active Substance: IBANDRONATE SODIUM
     Indication: OSTEOPOROSIS
     Dosage: RECEIVED THREE DOSE
     Route: 065
     Dates: start: 200707, end: 200804

REACTIONS (11)
  - Arthralgia [Not Recovered/Not Resolved]
  - Palpitations [Unknown]
  - Vision blurred [Unknown]
  - Influenza like illness [Unknown]
  - Erythema [Unknown]
  - Photophobia [Unknown]
  - Back pain [Not Recovered/Not Resolved]
  - Myalgia [Unknown]
  - Rash [Unknown]
  - Eye pain [Unknown]
  - Eye disorder [Not Recovered/Not Resolved]

NARRATIVE: CASE EVENT DATE: 20090310
